FAERS Safety Report 17117955 (Version 1)
Quarter: 2019Q4

REPORT INFORMATION
  Report Type: Spontaneous
  Country: JP (occurrence: JP)
  Receive Date: 20191205
  Receipt Date: 20191205
  Transmission Date: 20200122
  Serious: Yes (Death, Hospitalization)
  Sender: FDA-Public Use
  Company Number: JP-EISAI MEDICAL RESEARCH-EC-2019-066242

PATIENT
  Age: 87 Year
  Sex: Male

DRUGS (1)
  1. LENVIMA [Suspect]
     Active Substance: LENVATINIB
     Indication: ANAPLASTIC THYROID CANCER
     Dosage: DOSE AND FREQUENCY NOT PROVIDED
     Route: 048
     Dates: start: 20191008, end: 20191107

REACTIONS (8)
  - C-reactive protein increased [Recovering/Resolving]
  - Blood pressure decreased [Unknown]
  - General physical health deterioration [Unknown]
  - Haemorrhage [Unknown]
  - White blood cell count increased [Not Recovered/Not Resolved]
  - Protein urine present [Unknown]
  - Dizziness [Unknown]
  - Fistula [Not Recovered/Not Resolved]

NARRATIVE: CASE EVENT DATE: 2019
